FAERS Safety Report 7719768-1 (Version None)
Quarter: 2011Q3

REPORT INFORMATION
  Report Type: 
  Country: None (occurrence: None)
  Receive Date: 20110831
  Receipt Date: 20110822
  Transmission Date: 20111222
  Serious: Yes (Other)
  Sender: FDA-Public Use
  Company Number: BR-BIOGENIDEC-2010BI043055

PATIENT
  Age: 44 Year
  Sex: Female

DRUGS (4)
  1. IRON SUPPLEMENT [Concomitant]
     Indication: PREGNANCY
  2. MULTI-VITAMINS [Concomitant]
     Dates: start: 20110101
  3. AVONEX [Suspect]
     Indication: PRODUCT USED FOR UNKNOWN INDICATION
     Route: 030
     Dates: start: 20040101, end: 20101026
  4. MULTI-VITAMINS [Concomitant]
     Indication: PREGNANCY
     Dates: start: 20100101

REACTIONS (2)
  - CAESAREAN SECTION [None]
  - MATERNAL EXPOSURE DURING PREGNANCY [None]
